FAERS Safety Report 13536450 (Version 1)
Quarter: 2017Q2

REPORT INFORMATION
  Report Type: Spontaneous
  Country: DK (occurrence: DK)
  Receive Date: 20170511
  Receipt Date: 20170511
  Transmission Date: 20170830
  Serious: Yes (Death, Hospitalization)
  Sender: FDA-Public Use
  Company Number: DK-JNJFOC-20170508590

PATIENT
  Age: 70 Year
  Sex: Male

DRUGS (1)
  1. IMBRUVICA [Suspect]
     Active Substance: IBRUTINIB
     Indication: CHRONIC LYMPHOCYTIC LEUKAEMIA
     Route: 048
     Dates: start: 20160801, end: 20170213

REACTIONS (8)
  - Multiple organ dysfunction syndrome [Fatal]
  - Legionella infection [Fatal]
  - Respiratory failure [Fatal]
  - Acinetobacter infection [Fatal]
  - Febrile neutropenia [Fatal]
  - Sepsis [Fatal]
  - Enterobacter infection [Fatal]
  - Atypical mycobacterial infection [Fatal]

NARRATIVE: CASE EVENT DATE: 2017
